FAERS Safety Report 8530390-X (Version None)
Quarter: 2012Q3

REPORT INFORMATION
  Report Type: 
  Country: None (occurrence: None)
  Receive Date: 20120723
  Receipt Date: 20120717
  Transmission Date: 20120928
  Serious: Yes (Other)
  Sender: FDA-Public Use
  Company Number: ES-PFIZER INC-2012166674

PATIENT
  Sex: Male

DRUGS (5)
  1. CILOSTAZOL [Interacting]
     Indication: ARTERIOSCLEROSIS
     Dosage: UNK
     Route: 065
     Dates: start: 20120501, end: 20120601
  2. PREGABALIN [Concomitant]
     Dosage: UNK
     Route: 048
  3. DISGREN [Concomitant]
     Dosage: 300 MG
     Route: 048
  4. PANTOPRAZOLE [Suspect]
     Dosage: 20 MG, UNK
     Route: 065
  5. CARDURA [Concomitant]
     Dosage: 4 MG
     Route: 048

REACTIONS (3)
  - DRUG INTERACTION [None]
  - ATRIAL FIBRILLATION [None]
  - ATRIOVENTRICULAR BLOCK FIRST DEGREE [None]
